FAERS Safety Report 4984918-7 (Version None)
Quarter: 2006Q1

REPORT INFORMATION
  Report Type: 
  Country: None (occurrence: None)
  Receive Date: 20060308
  Receipt Date: 20050509
  Transmission Date: 20060701
  Serious: Yes (Other)
  Sender: FDA-Public Use
  Company Number: 18315

PATIENT
  Age: 35 Year
  Sex: Male

DRUGS (1)
  1. DILTIAZEM HCL [Suspect]
     Indication: ATRIAL FIBRILLATION
     Dosage: 10MG/IV/OVER 3 MIN
     Route: 042
     Dates: start: 20050509

REACTIONS (1)
  - HYPOTENSION [None]
